FAERS Safety Report 13857632 (Version 1)
Quarter: 2017Q3

REPORT INFORMATION
  Report Type: Spontaneous
  Country: US (occurrence: US)
  Receive Date: 20170811
  Receipt Date: 20170811
  Transmission Date: 20171127
  Serious: No
  Sender: FDA-Public Use
  Company Number: US-IROKO PHARMACEUTICALS LLC-US-I09001-17-00057

PATIENT
  Age: 27 Year
  Sex: Male
  Weight: 111.23 kg

DRUGS (1)
  1. VIVLODEX [Suspect]
     Active Substance: MELOXICAM
     Indication: ARTHRALGIA
     Route: 048
     Dates: start: 20170503, end: 20170503

REACTIONS (6)
  - Pruritus generalised [Recovered/Resolved]
  - Ear swelling [Recovered/Resolved]
  - Nasal oedema [Recovered/Resolved]
  - Skin burning sensation [Recovered/Resolved]
  - Generalised erythema [Recovered/Resolved]
  - Drug hypersensitivity [Recovered/Resolved]

NARRATIVE: CASE EVENT DATE: 20170503
